FAERS Safety Report 19017608 (Version 1)
Quarter: 2021Q1

REPORT INFORMATION
  Report Type: Spontaneous
  Country: DK (occurrence: DK)
  Receive Date: 20210316
  Receipt Date: 20210316
  Transmission Date: 20210420
  Serious: Yes (Hospitalization)
  Sender: FDA-Public Use
  Company Number: DK-NOVOPROD-795003

PATIENT
  Age: 59 Year
  Sex: Female

DRUGS (1)
  1. VAGIFEM [Suspect]
     Active Substance: ESTRADIOL
     Indication: URINARY TRACT INFECTION
     Dosage: 1 X 2 PER WEEK (EVERY SUNDAY AND THURSDAY)
     Route: 065
     Dates: start: 20180801, end: 20200817

REACTIONS (5)
  - Chest discomfort [Recovered/Resolved]
  - Seasonal allergy [Unknown]
  - Off label use [Unknown]
  - Dyspnoea exertional [Recovered/Resolved]
  - Allergy to animal [Unknown]

NARRATIVE: CASE EVENT DATE: 20180801
